FAERS Safety Report 4277905-8 (Version None)
Quarter: 2004Q1

REPORT INFORMATION
  Report Type: 
  Country: None (occurrence: None)
  Receive Date: 20040123
  Receipt Date: 20031029
  Transmission Date: 20041129
  Serious: Yes (Hospitalization)
  Sender: FDA-Public Use
  Company Number: US-GLAXOSMITHKLINE-A0433342A

PATIENT
  Age: 15 Month
  Sex: Male

DRUGS (2)
  1. AVANDIA [Suspect]
     Route: 048
  2. GLUCOVANCE [Suspect]
     Route: 048

REACTIONS (3)
  - ACCIDENTAL EXPOSURE [None]
  - CONVULSION [None]
  - HYPOGLYCAEMIA [None]
